FAERS Safety Report 6822961-3 (Version None)
Quarter: 2010Q3

REPORT INFORMATION
  Report Type: 
  Country: None (occurrence: None)
  Receive Date: 20100708
  Receipt Date: 20100629
  Transmission Date: 20110219
  Serious: Yes (Death, Hospitalization)
  Sender: FDA-Public Use
  Company Number: A0864287A

PATIENT
  Sex: Female

DRUGS (1)
  1. AVANDAMET [Suspect]

REACTIONS (2)
  - CARDIAC ARREST [None]
  - SURGERY [None]
